FAERS Safety Report 7565185-7 (Version None)
Quarter: 2011Q2

REPORT INFORMATION
  Report Type: 
  Country: None (occurrence: None)
  Receive Date: 20110622
  Receipt Date: 20080228
  Transmission Date: 20111010
  Serious: Yes (Death, Hospitalization, Other)
  Sender: FDA-Public Use
  Company Number: PHHY2008US00691

PATIENT
  Sex: Male
  Weight: 69 kg

DRUGS (2)
  1. EXJADE [Suspect]
     Indication: CHELATION THERAPY
     Dosage: 1250 MG, QD
     Route: 048
     Dates: start: 20070924
  2. DECITABINE [Concomitant]
     Dates: start: 20071217

REACTIONS (16)
  - PLEURAL EFFUSION [None]
  - HYPOXIA [None]
  - CONTUSION [None]
  - CARDIAC FAILURE CONGESTIVE [None]
  - REFRACTORY ANAEMIA WITH AN EXCESS OF BLASTS [None]
  - ATELECTASIS [None]
  - FEBRILE NEUTROPENIA [None]
  - HEADACHE [None]
  - ASTHENIA [None]
  - SUBDURAL HAEMATOMA [None]
  - PANCYTOPENIA [None]
  - HAEMORRHAGE [None]
  - AGITATION [None]
  - PULMONARY HYPERTENSION [None]
  - PYREXIA [None]
  - FALL [None]
